FAERS Safety Report 16639387 (Version 2)
Quarter: 2021Q4

REPORT INFORMATION
  Report Type: Spontaneous
  Country: BR (occurrence: BR)
  Receive Date: 20190726
  Receipt Date: 20211201
  Transmission Date: 20220303
  Serious: Yes (Other)
  Sender: FDA-Public Use
  Company Number: BR-BIOMARINAP-BR-2019-124798

PATIENT
  Sex: Male
  Weight: 68 kg

DRUGS (1)
  1. ALDURAZYME [Suspect]
     Active Substance: LARONIDASE
     Indication: Mucopolysaccharidosis
     Dosage: 14 DOSAGE FORM, QW
     Route: 041
     Dates: start: 20070601, end: 20190226

REACTIONS (5)
  - Respiratory disorder [Recovering/Resolving]
  - African trypanosomiasis [Unknown]
  - Influenza [Recovered/Resolved]
  - Respiratory rate decreased [Recovered/Resolved]
  - Dyspnoea [Recovered/Resolved]
